FAERS Safety Report 16397521 (Version 1)
Quarter: 2019Q2

REPORT INFORMATION
  Report Type: Spontaneous
  Country: US (occurrence: US)
  Receive Date: 20190606
  Receipt Date: 20190606
  Transmission Date: 20190711
  Serious: No
  Sender: FDA-Public Use
  Company Number: US-TEVA-2019-US-1058377

PATIENT
  Sex: Female

DRUGS (6)
  1. AUSTEDO [Suspect]
     Active Substance: DEUTETRABENAZINE
     Dosage: WEEK 3 : TAKE 9 MG A.M.  AND 6 MG P.M.
     Route: 065
  2. AUSTEDO [Suspect]
     Active Substance: DEUTETRABENAZINE
     Dosage: WEEK 5: TAKE 6 MG AND 9 MG A.M AND 9 MG P.M.
     Route: 065
  3. AUSTEDO [Suspect]
     Active Substance: DEUTETRABENAZINE
     Dosage: WEEK 1 AND WEEK 2: TAKE 6 MG TB
     Route: 065
     Dates: start: 20190504
  4. CALCIUM + D3 [Concomitant]
     Active Substance: CALCIUM\CHOLECALCIFEROL
     Dosage: CALCIUM + D3 600 MG-500 TABLET ER
  5. AUSTEDO [Suspect]
     Active Substance: DEUTETRABENAZINE
     Dosage: 18 MILLIGRAM DAILY; WEEK 4
     Route: 065
  6. ZYRTEC 10 MG CAPSULE [Concomitant]

REACTIONS (5)
  - Restlessness [Unknown]
  - Hyperhidrosis [Unknown]
  - Furuncle [Unknown]
  - Back injury [Unknown]
  - Insomnia [Unknown]
